FAERS Safety Report 5493108-3 (Version None)
Quarter: 2007Q4

REPORT INFORMATION
  Report Type: 
  Country: None (occurrence: None)
  Receive Date: 20071018
  Receipt Date: 20071005
  Transmission Date: 20080405
  Serious: Yes (Disabling)
  Sender: FDA-Public Use
  Company Number: 162523ISR

PATIENT
  Age: 68 Year
  Sex: Male

DRUGS (2)
  1. SIMVASTATIN [Suspect]
     Indication: CORONARY ARTERY BYPASS
     Dosage: 40 MG ORAL
     Route: 048
     Dates: start: 20070701, end: 20070827
  2. SIMVASTATIN [Suspect]
     Indication: PROPHYLAXIS
     Dosage: 40 MG ORAL
     Route: 048
     Dates: start: 20070701, end: 20070827

REACTIONS (3)
  - AFFECTIVE DISORDER [None]
  - FEELING ABNORMAL [None]
  - TEARFULNESS [None]
